FAERS Safety Report 16010842 (Version 2)
Quarter: 2019Q2

REPORT INFORMATION
  Report Type: Spontaneous
  Country: US (occurrence: US)
  Receive Date: 20190227
  Receipt Date: 20190418
  Transmission Date: 20190711
  Serious: No
  Sender: FDA-Public Use
  Company Number: US-ASTRAZENECA-2019SE18774

PATIENT
  Age: 750 Month
  Sex: Male
  Weight: 93 kg

DRUGS (4)
  1. METFORMIN [Concomitant]
     Active Substance: METFORMIN HYDROCHLORIDE
     Route: 065
  2. BYDUREON BCISE [Suspect]
     Active Substance: EXENATIDE
     Indication: DIABETES MELLITUS
     Route: 058
     Dates: start: 201812
  3. BYDUREON [Suspect]
     Active Substance: EXENATIDE
     Indication: DIABETES MELLITUS
     Dosage: ONCE A WEEK
     Route: 065
     Dates: start: 201812
  4. BYDUREON [Suspect]
     Active Substance: EXENATIDE
     Indication: DIABETES MELLITUS
     Dosage: ONCE A WEEK
     Route: 065
     Dates: start: 201707, end: 201809

REACTIONS (11)
  - Product use issue [Unknown]
  - Blood glucose fluctuation [Not Recovered/Not Resolved]
  - Injection site extravasation [Recovered/Resolved]
  - Device malfunction [Unknown]
  - Injection site mass [Not Recovered/Not Resolved]
  - Fatigue [Unknown]
  - Product dose omission [Not Recovered/Not Resolved]
  - Gastrointestinal disorder [Recovered/Resolved]
  - Feeling abnormal [Not Recovered/Not Resolved]
  - Glycosylated haemoglobin increased [Not Recovered/Not Resolved]
  - Diarrhoea [Not Recovered/Not Resolved]

NARRATIVE: CASE EVENT DATE: 201707
